FAERS Safety Report 8939550 (Version 2)
Quarter: 2012Q4

REPORT INFORMATION
  Report Type: 
  Country: US (occurrence: US)
  Receive Date: 20121121
  Receipt Date: 20121212
  Transmission Date: 20130627
  Serious: Yes (Death, Hospitalization, Other)
  Sender: FDA-Public Use
  Company Number: US-ASTELLAS-1114227

PATIENT
  Sex: Male
  Weight: 98.06 kg

DRUGS (21)
  1. TARCEVA [Suspect]
     Indication: LUNG NEOPLASM MALIGNANT
     Route: 065
  2. POTASSIUM CHLORIDE [Concomitant]
     Route: 048
  3. ALIMTA [Concomitant]
     Route: 065
     Dates: start: 20080807
  4. DUONEB [Concomitant]
  5. FLOMAX [Concomitant]
  6. FUROSEMIDE [Concomitant]
  7. PREDNISONE [Concomitant]
     Route: 048
  8. PREDNISONE [Concomitant]
     Route: 065
  9. SPIRIVA [Concomitant]
     Route: 065
  10. TUSSIONEX (UNITED STATES) [Concomitant]
     Route: 065
  11. PROAIR (UNITED STATES) [Concomitant]
     Route: 065
  12. OXYCODONE [Concomitant]
     Route: 065
  13. CENTRUM SILVER [Concomitant]
     Route: 065
  14. ALBUTEROL [Concomitant]
     Route: 065
  15. BISOPROLOL [Concomitant]
     Route: 048
  16. AMLODIPINE [Concomitant]
  17. K-PHOS [Concomitant]
  18. FUROSEMIDE [Concomitant]
     Route: 065
  19. FOLIC ACID [Concomitant]
  20. CISPLATIN [Concomitant]
  21. GEMCITABINE [Concomitant]

REACTIONS (7)
  - Disease progression [Fatal]
  - Respiratory distress [Unknown]
  - Dyspnoea [Unknown]
  - Haemoptysis [Unknown]
  - Cardiac failure congestive [Unknown]
  - Sinus tachycardia [Unknown]
  - Rash maculo-papular [Unknown]
